FAERS Safety Report 12767113 (Version 3)
Quarter: 2016Q4

REPORT INFORMATION
  Report Type: Spontaneous
  Country: IT (occurrence: IT)
  Receive Date: 20160921
  Receipt Date: 20161014
  Transmission Date: 20170207
  Serious: Yes (Death)
  Sender: FDA-Public Use
  Company Number: IT-PFIZER INC-2016436899

PATIENT
  Age: 66 Year
  Sex: Male

DRUGS (1)
  1. VFEND [Suspect]
     Active Substance: VORICONAZOLE
     Indication: ANTIFUNGAL PROPHYLAXIS
     Dosage: 200 MG, DAILY
     Route: 048
     Dates: start: 20061127, end: 20080526

REACTIONS (2)
  - Metastatic squamous cell carcinoma [Fatal]
  - Metastases to nervous system [Fatal]

NARRATIVE: CASE EVENT DATE: 20090515
